FAERS Safety Report 5778903-5 (Version None)
Quarter: 2008Q2

REPORT INFORMATION
  Report Type: 
  Country: None (occurrence: None)
  Receive Date: 20080619
  Receipt Date: 20080610
  Transmission Date: 20081010
  Serious: Yes (Hospitalization)
  Sender: FDA-Public Use
  Company Number: JP-MERCK-0806USA02174

PATIENT
  Age: 70 Year

DRUGS (9)
  1. HYDRODIURIL [Suspect]
     Route: 048
     Dates: start: 20080501
  2. COZAAR [Concomitant]
     Route: 048
  3. ADALAT [Concomitant]
     Route: 048
  4. LASIX [Concomitant]
     Route: 048
     Dates: start: 20080501
  5. TORSEMIDE [Concomitant]
     Route: 048
     Dates: end: 20080501
  6. TANATRIL [Concomitant]
     Route: 048
     Dates: end: 20080501
  7. TANATRIL [Concomitant]
     Route: 048
     Dates: start: 20080501
  8. ATELEC [Concomitant]
     Route: 048
  9. KALIMATE [Concomitant]
     Route: 048
     Dates: start: 20080501

REACTIONS (2)
  - BLOOD CREATININE INCREASED [None]
  - BLOOD UREA INCREASED [None]
